FAERS Safety Report 6593907-0 (Version None)
Quarter: 2010Q1

REPORT INFORMATION
  Report Type: 
  Country: None (occurrence: None)
  Receive Date: 20100222
  Receipt Date: 20100215
  Transmission Date: 20100710
  Serious: Yes (Life-Threatening, Hospitalization)
  Sender: FDA-Public Use
  Company Number: PHHY2010DE08685

PATIENT
  Sex: Female

DRUGS (28)
  1. AREDIA [Suspect]
     Indication: OSTEOPOROSIS PROPHYLAXIS
     Dosage: 30 MG, UNK
     Route: 042
     Dates: start: 20070126, end: 20070126
  2. THEOPHYLLINE [Suspect]
     Indication: BRONCHIAL OBSTRUCTION
     Dosage: UNK
     Dates: start: 20070125, end: 20070125
  3. DECORTIN-H [Suspect]
     Indication: IDIOPATHIC THROMBOCYTOPENIC PURPURA
     Dosage: UNK
     Route: 048
     Dates: start: 20070110, end: 20070201
  4. BRONCHO [Suspect]
     Indication: DYSPNOEA
     Dosage: UNK
     Dates: start: 20070101, end: 20070203
  5. CLEXANE [Suspect]
     Dosage: 0.3 ML, QD
     Route: 058
     Dates: start: 20070126, end: 20070208
  6. VERGENTAN [Concomitant]
     Indication: NAUSEA
     Dosage: UNK
     Route: 042
     Dates: start: 20070110
  7. EMBOLEX [Concomitant]
     Indication: THROMBOSIS
     Dosage: UNK
     Route: 042
     Dates: start: 20070111
  8. MCP [Concomitant]
     Indication: NAUSEA
     Dosage: UNK
     Route: 017
     Dates: start: 20070110
  9. PANTOZOL [Concomitant]
     Route: 042
  10. RINGER [Concomitant]
     Indication: FLUID REPLACEMENT
     Dosage: UNK
     Dates: start: 20070108
  11. ELECTROLYTES NOS [Concomitant]
     Indication: FLUID REPLACEMENT
     Dosage: UNK
     Route: 042
  12. LIQUAEMIN INJ [Concomitant]
     Indication: THROMBOSIS
     Route: 042
  13. ERYTHROZTENKONZ [Concomitant]
     Indication: HAEMOLYTIC ANAEMIA
     Route: 042
  14. MORPHIN HCL [Concomitant]
     Indication: PAIN
     Route: 042
  15. BLOOD AND RELATED PRODUCTS [Concomitant]
     Route: 042
  16. SODIUM CHLORIDE [Concomitant]
     Indication: FLUID REPLACEMENT
     Route: 042
  17. SOLU-DECORTIN-H [Concomitant]
     Indication: SEPSIS
     Route: 042
  18. LASIX [Concomitant]
     Indication: POLYURIA
     Route: 042
  19. KALINOR [Concomitant]
     Indication: HYPOKALAEMIA
     Route: 048
  20. VIGANTOL [Concomitant]
     Indication: PROPHYLAXIS
     Route: 048
  21. MOVICOL [Concomitant]
     Indication: CONSTIPATION
     Route: 048
  22. NORVASC [Concomitant]
     Indication: HYPERTENSION
     Route: 048
  23. LOCAL ANAESTHETICS [Concomitant]
     Indication: BIOPSY LIVER
     Route: 058
  24. FENISTIL [Concomitant]
     Indication: PRURITUS
  25. URSO FALK [Concomitant]
     Indication: HEPATIC ENZYME INCREASED
  26. NOVALGIN [Concomitant]
     Indication: PAIN
     Route: 048
  27. BETAMETHASONE [Concomitant]
     Indication: SKIN LESION
     Route: 061
  28. ACYCLOVIR [Concomitant]
     Indication: HERPES VIRUS INFECTION
     Route: 042

REACTIONS (7)
  - BLISTER [None]
  - HEPATIC ENZYME INCREASED [None]
  - NIKOLSKY'S SIGN [None]
  - PRURITUS [None]
  - SKIN LESION [None]
  - STEVENS-JOHNSON SYNDROME [None]
  - TOXIC EPIDERMAL NECROLYSIS [None]
